FAERS Safety Report 8874550 (Version 1)
Quarter: 2012Q4

REPORT INFORMATION
  Report Type: 
  Country: CY (occurrence: TR)
  Receive Date: 20121029
  Receipt Date: 20121029
  Transmission Date: 20130627
  Serious: Yes (Hospitalization, Other)
  Sender: FDA-Public Use
  Company Number: TR-ELI_LILLY_AND_COMPANY-TR201210005760

PATIENT
  Age: 24 Year
  Sex: Male

DRUGS (5)
  1. OLANZAPINE [Suspect]
     Indication: BIPOLAR DISORDER
     Dosage: 15 mg, qd
  2. OLANZAPINE [Suspect]
     Dosage: 20 mg, qd
  3. OLANZAPINE [Suspect]
     Dosage: 15 mg, qd
  4. OLANZAPINE [Suspect]
     Dosage: 10 mg, qd
  5. VALPROIC ACID [Concomitant]
     Indication: BIPOLAR DISORDER

REACTIONS (5)
  - Tardive dyskinesia [Recovering/Resolving]
  - Psychotic disorder [Recovering/Resolving]
  - Drug ineffective [Unknown]
  - Social avoidant behaviour [None]
  - Insomnia [None]
